FAERS Safety Report 8594417-1 (Version None)
Quarter: 2012Q3

REPORT INFORMATION
  Report Type: 
  Country: None (occurrence: None)
  Receive Date: 20120815
  Receipt Date: 20120806
  Transmission Date: 20120928
  Serious: No
  Sender: FDA-Public Use
  Company Number: US-BIOGENIDEC-2012BI029934

PATIENT
  Sex: Male

DRUGS (7)
  1. AVONEX [Suspect]
     Indication: MULTIPLE SCLEROSIS
     Route: 030
     Dates: start: 19981201
  2. TYSABRI [Concomitant]
     Indication: MULTIPLE SCLEROSIS
     Route: 042
     Dates: start: 20090612, end: 20090612
  3. TYSABRI [Concomitant]
     Route: 042
     Dates: start: 20100318, end: 20110805
  4. TYSABRI [Concomitant]
     Route: 042
     Dates: start: 20111114
  5. TRAMADOL HCL [Concomitant]
     Indication: PAIN IN EXTREMITY
  6. TRAMADOL HCL [Concomitant]
  7. TRAMADOL HCL [Concomitant]
     Indication: DYSSTASIA

REACTIONS (3)
  - INSOMNIA [None]
  - GENERAL SYMPTOM [None]
  - SUICIDAL IDEATION [None]
